FAERS Safety Report 7446867-4 (Version None)
Quarter: 2011Q2

REPORT INFORMATION
  Report Type: 
  Country: None (occurrence: None)
  Receive Date: 20110429
  Receipt Date: 20110427
  Transmission Date: 20111010
  Serious: Yes (Death, Hospitalization)
  Sender: FDA-Public Use
  Company Number: DE-PFIZER INC-2011091279

PATIENT
  Age: 55 Year
  Sex: Female

DRUGS (1)
  1. TORISEL [Suspect]
     Indication: HEAD AND NECK CANCER
     Dosage: 25 MG, WEEKLY
     Route: 042
     Dates: start: 20101124, end: 20101124

REACTIONS (2)
  - ARTHRALGIA [None]
  - SEPSIS [None]
